FAERS Safety Report 5058445-5 (Version None)
Quarter: 2006Q3

REPORT INFORMATION
  Report Type: 
  Country: None (occurrence: None)
  Receive Date: 20060721
  Receipt Date: 20060710
  Transmission Date: 20061208
  Serious: Yes (Other)
  Sender: FDA-Public Use
  Company Number: US-NOVOPROD-254776

PATIENT
  Age: 11 Year
  Sex: Female
  Weight: 25 kg

DRUGS (1)
  1. NORDITROPIN [Suspect]
     Indication: TURNER'S SYNDROME
     Dosage: 1.8 MG, QD 6 DAYS A WEEK
     Route: 058
     Dates: start: 20050301

REACTIONS (1)
  - COLITIS ULCERATIVE [None]
